FAERS Safety Report 4863960-0 (Version None)
Quarter: 2005Q4

REPORT INFORMATION
  Report Type: 
  Country: None (occurrence: None)
  Receive Date: 20051222
  Receipt Date: 20051220
  Transmission Date: 20060501
  Serious: Yes (Death, Hospitalization)
  Sender: FDA-Public Use
  Company Number: DE-BRISTOL-MYERS SQUIBB COMPANY-13223011

PATIENT
  Age: 65 Year
  Sex: Male

DRUGS (3)
  1. MITOMYCIN [Suspect]
     Indication: NON-SMALL CELL LUNG CANCER
     Route: 042
     Dates: start: 20051128, end: 20051128
  2. NAVELBINE [Concomitant]
     Indication: NON-SMALL CELL LUNG CANCER
     Route: 042
     Dates: start: 20051010, end: 20051128
  3. ERYPO [Concomitant]
     Indication: NON-SMALL CELL LUNG CANCER
     Dates: start: 20051013, end: 20051208

REACTIONS (5)
  - DYSPNOEA [None]
  - HYPOXIA [None]
  - PULMONARY EMBOLISM [None]
  - PULMONARY FIBROSIS [None]
  - SHOCK [None]
